FAERS Safety Report 22284086 (Version 2)
Quarter: 2023Q2

REPORT INFORMATION
  Report Type: Spontaneous
  Country: RU (occurrence: RU)
  Receive Date: 20230504
  Receipt Date: 20230511
  Transmission Date: 20230721
  Serious: Yes (Other)
  Sender: FDA-Public Use
  Company Number: RU-002147023-NVSC2023RU095457

PATIENT
  Age: 42 Year
  Sex: Female

DRUGS (1)
  1. METHOTREXATE [Suspect]
     Active Substance: METHOTREXATE
     Indication: Granulomatosis with polyangiitis
     Dosage: 7.5 MG, QW
     Route: 065

REACTIONS (3)
  - Granulomatosis with polyangiitis [Unknown]
  - Condition aggravated [Unknown]
  - Product use in unapproved indication [Unknown]

NARRATIVE: CASE EVENT DATE: 20131201
